FAERS Safety Report 8899084 (Version 1)
Quarter: 2012Q4

REPORT INFORMATION
  Report Type: 
  Country: US (occurrence: US)
  Receive Date: 20121108
  Receipt Date: 20121108
  Transmission Date: 20130627
  Serious: No
  Sender: FDA-Public Use
  Company Number: US-AMGEN-USASP2012034452

PATIENT
  Sex: Female

DRUGS (6)
  1. ENBREL [Suspect]
     Indication: PRODUCT USED FOR UNKNOWN INDICATION
     Dosage: 50 mg, qwk
     Route: 058
  2. VIVELLE DOT [Concomitant]
     Dosage: 0.037 mg, UNK
  3. VITAMIN D /00107901/ [Concomitant]
  4. PRILOSEC                           /00661201/ [Concomitant]
     Dosage: 20 mg, UNK
  5. MULTIVITAMIN                       /00097801/ [Concomitant]
  6. CALCIUM W/VITAMIN D                /00188401/ [Concomitant]

REACTIONS (1)
  - Pharyngitis [Unknown]
